FAERS Safety Report 6108577-5 (Version None)
Quarter: 2009Q1

REPORT INFORMATION
  Report Type: 
  Country: None (occurrence: None)
  Receive Date: 20090303
  Receipt Date: 20090120
  Transmission Date: 20090719
  Serious: Yes (Life-Threatening, Hospitalization)
  Sender: FDA-Public Use
  Company Number: 20096218

PATIENT
  Age: 33 Year
  Sex: Male

DRUGS (1)
  1. LIORESAL [Suspect]
     Indication: MUSCLE SPASTICITY
     Dosage: 20ML DILUTED WITH 40 ML, 500 MCG/

REACTIONS (9)
  - BRADYCARDIA [None]
  - DEVICE MALFUNCTION [None]
  - DYSPNOEA [None]
  - GRAND MAL CONVULSION [None]
  - HYPERTENSION [None]
  - HYPOVENTILATION [None]
  - MYDRIASIS [None]
  - PUPILLARY REFLEX IMPAIRED [None]
  - UNRESPONSIVE TO STIMULI [None]
